FAERS Safety Report 18852001 (Version 1)
Quarter: 2021Q1

REPORT INFORMATION
  Report Type: Spontaneous
  Country: US (occurrence: US)
  Receive Date: 20210205
  Receipt Date: 20210205
  Transmission Date: 20210420
  Serious: Yes (Disabling)
  Sender: FDA-Public Use
  Company Number: None

PATIENT
  Age: 51 Year
  Sex: Male
  Weight: 70.2 kg

DRUGS (10)
  1. KIRKLAND 91MG ASPIRIN [Concomitant]
  2. KIRKLAND DAILY MULTIVITAMIN [Concomitant]
  3. B?12 SUPPLEMENT [Concomitant]
  4. TALTZ [Suspect]
     Active Substance: IXEKIZUMAB
     Indication: PSORIATIC ARTHROPATHY
     Dates: start: 20200309, end: 20200824
  5. FIASP FLEXTOUCH PEN [Concomitant]
  6. ATORVASTATIN [Concomitant]
     Active Substance: ATORVASTATIN
  7. CITRUCEL + CINSULIN SUPPLEMENTS [Concomitant]
  8. TOUJEO MAX SOLOSTAR PEN [Concomitant]
  9. RAMIPRIL. [Concomitant]
     Active Substance: RAMIPRIL
  10. FREESTYLE LIBRE 2 SENSOR [Concomitant]

REACTIONS (1)
  - Deafness neurosensory [None]

NARRATIVE: CASE EVENT DATE: 20200809
